FAERS Safety Report 6387027-8 (Version None)
Quarter: 2009Q4

REPORT INFORMATION
  Report Type: 
  Country: None (occurrence: None)
  Receive Date: 20091002
  Receipt Date: 20090928
  Transmission Date: 20100525
  Serious: Yes (Other)
  Sender: FDA-Public Use
  Company Number: FR-BAXTER-2009BH014741

PATIENT
  Age: 17 Month
  Sex: Female
  Weight: 9 kg

DRUGS (1)
  1. ENDOXAN BAXTER [Suspect]
     Indication: CEREBRAL NEUROBLASTOMA
     Route: 042
     Dates: start: 20090821

REACTIONS (1)
  - EXTRAVASATION [None]
